FAERS Safety Report 6972790-5 (Version None)
Quarter: 2010Q3

REPORT INFORMATION
  Report Type: 
  Country: None (occurrence: None)
  Receive Date: 20100909
  Receipt Date: 20100806
  Transmission Date: 20110219
  Serious: No
  Sender: FDA-Public Use
  Company Number: US-PFIZER INC-2010085318

PATIENT
  Sex: Female

DRUGS (3)
  1. SPIRONOLACTONE [Suspect]
     Dosage: UNK
  2. ALISKIREN/VALSARTAN [Suspect]
     Dosage: UNK
  3. LASIX [Concomitant]
     Dosage: UNK

REACTIONS (2)
  - MALAISE [None]
  - VOMITING [None]
